FAERS Safety Report 22797028 (Version 5)
Quarter: 2023Q4

REPORT INFORMATION
  Report Type: Spontaneous
  Country: US (occurrence: US)
  Receive Date: 20230808
  Receipt Date: 20231128
  Transmission Date: 20240109
  Serious: No
  Sender: FDA-Public Use
  Company Number: US-SA-SAC20230807000799

PATIENT
  Age: 68 Year
  Sex: Female

DRUGS (1)
  1. DUPIXENT [Suspect]
     Active Substance: DUPILUMAB
     Indication: Eosinophilic oesophagitis
     Dosage: 300 MG, QW
     Route: 058
     Dates: start: 20230707

REACTIONS (6)
  - Injection site discharge [Unknown]
  - Sleep disorder [Unknown]
  - Eye disorder [Unknown]
  - Fatigue [Unknown]
  - Injection site calcification [Unknown]
  - Foot operation [Unknown]

NARRATIVE: CASE EVENT DATE: 20230101
